FAERS Safety Report 5567176-4 (Version None)
Quarter: 2007Q4

REPORT INFORMATION
  Report Type: 
  Country: None (occurrence: None)
  Receive Date: 20071219
  Receipt Date: 20071212
  Transmission Date: 20080405
  Serious: Yes (Hospitalization, Other)
  Sender: FDA-Public Use
  Company Number: US-ELI_LILLY_AND_COMPANY-US200711001584

PATIENT
  Age: 56 Year
  Sex: Male

DRUGS (6)
  1. HUMALOG [Suspect]
     Dosage: UNK, AS NEEDED
  2. LANTUS [Concomitant]
  3. LEVEMIR [Concomitant]
     Dosage: 45 U, UNK
  4. BYETTA [Concomitant]
     Dosage: 0.005 MG, 2/D
     Dates: start: 20060101, end: 20060101
  5. BYETTA [Concomitant]
     Dosage: 0.01 MG, 2/D
     Dates: start: 20060101, end: 20070401
  6. METFORMIN HCL [Concomitant]
     Indication: RENAL DISORDER

REACTIONS (10)
  - BLADDER CANCER RECURRENT [None]
  - BLOOD CREATININE INCREASED [None]
  - BLOOD GLUCOSE DECREASED [None]
  - BLOOD GLUCOSE FLUCTUATION [None]
  - HEPATIC STEATOSIS [None]
  - ILEOSTOMY [None]
  - INCOHERENT [None]
  - LIVER FUNCTION TEST ABNORMAL [None]
  - SEPSIS [None]
  - URINARY TRACT INFECTION [None]
